FAERS Safety Report 5043123-9 (Version None)
Quarter: 2006Q2

REPORT INFORMATION
  Report Type: 
  Country: None (occurrence: None)
  Receive Date: 20060628
  Receipt Date: 20060622
  Transmission Date: 20061013
  Serious: Yes (Hospitalization)
  Sender: FDA-Public Use
  Company Number: 200610747BNE

PATIENT
  Age: 76 Year
  Sex: Female

DRUGS (8)
  1. ASPIRIN [Suspect]
     Indication: CARDIOVASCULAR DISORDER
     Dosage: 150 MG, TOTAL DAILY,
  2. DICLOFENAC SODIUM [Suspect]
  3. ACETAMINOPHEN W/ CODEINE [Concomitant]
  4. FUROSEMIDE [Concomitant]
  5. METFORMIN [Concomitant]
  6. NOVOMIX [INSULIN ASPART] [Concomitant]
  7. SPIRONOLACTONE [Concomitant]
  8. VITAMIN B-12 [Concomitant]

REACTIONS (6)
  - BLOOD POTASSIUM INCREASED [None]
  - DYSPNOEA [None]
  - FALL [None]
  - GASTRIC ULCER [None]
  - HAEMOGLOBIN DECREASED [None]
  - LETHARGY [None]
